FAERS Safety Report 13795144 (Version 1)
Quarter: 2017Q3

REPORT INFORMATION
  Report Type: Other
  Country: None (occurrence: US)
  Receive Date: 20170726
  Receipt Date: 20170726
  Transmission Date: 20171127
  Serious: Yes (Other)
  Sender: FDA-Public Use
  Company Number: US-GUTHY-RENKER LLC-2023804

PATIENT
  Age: 60 Year
  Sex: Female

DRUGS (4)
  1. MEANINGFUL BEAUTY CINDY CRAWFORD SKIN BRIGHTENING DECOLLETE AND NECK TREATMENT SPF 15 [Suspect]
     Active Substance: AVOBENZONE\OCTINOXATE\OCTISALATE\OXYBENZONE
     Indication: PROPHYLAXIS AGAINST SOLAR RADIATION
     Route: 061
     Dates: start: 20170717
  2. INSULIN, BABY ASPIRIN, FIORICET, INHALERS, INJECTION IN HER EYES [Concomitant]
  3. LYRICA, EPIPEN PRN BEE STINGS [Concomitant]
  4. MEANINGFUL BEAUTY CINDY CRAWFORD ANTIOXIDANT SPF 20 UVA/UVB [Suspect]
     Active Substance: AVOBENZONE\OCTINOXATE\OCTISALATE\OXYBENZONE
     Route: 061
     Dates: start: 20170717

REACTIONS (6)
  - Wheezing [None]
  - Eye swelling [None]
  - Wrong technique in product usage process [None]
  - Drug hypersensitivity [Recovering/Resolving]
  - Pruritus [None]
  - Rash [None]

NARRATIVE: CASE EVENT DATE: 20170717
